FAERS Safety Report 10099489 (Version 1)
Quarter: 2014Q2

REPORT INFORMATION
  Report Type: Spontaneous
  Country: CN (occurrence: CN)
  Receive Date: 20140423
  Receipt Date: 20140423
  Transmission Date: 20141212
  Serious: Yes (Hospitalization)
  Sender: FDA-Public Use
  Company Number: CN-ABBVIE-14P-035-1228806-00

PATIENT
  Age: 21 Year
  Sex: Female

DRUGS (1)
  1. DEPAKINE CHRONO [Suspect]
     Indication: MUSCLE SPASMS
     Route: 048
     Dates: start: 20130220, end: 20130221

REACTIONS (1)
  - Leukopenia [Recovering/Resolving]
